FAERS Safety Report 4478850-5 (Version None)
Quarter: 2004Q4

REPORT INFORMATION
  Report Type: 
  Country: None (occurrence: None)
  Receive Date: 20041013
  Receipt Date: 20040929
  Transmission Date: 20050328
  Serious: Yes (Hospitalization)
  Sender: FDA-Public Use
  Company Number: US_030191322

PATIENT
  Age: 38 Year
  Sex: Female
  Weight: 51 kg

DRUGS (7)
  1. GEMCITABINE HYDROCHLORIDE-IV (GEMCITABINE) [Suspect]
     Indication: CERVIX CARCINOMA
     Dosage: 125 MG/M2/WEEK
     Dates: start: 20021203, end: 20021231
  2. CISPLATIN [Suspect]
     Indication: CERVIX CARCINOMA
     Dosage: 40 MG/M2/WEEK
     Dates: start: 20021203, end: 20021231
  3. RADIATION THERAPY [Suspect]
     Indication: CERVIX CARCINOMA
  4. RANITIDINE [Concomitant]
  5. LOMOTIL [Concomitant]
  6. MULTIVITAMIN [Concomitant]
  7. MINERALS NOS [Concomitant]

REACTIONS (16)
  - ABDOMINAL DISTENSION [None]
  - ANAEMIA [None]
  - DEHYDRATION [None]
  - DIARRHOEA [None]
  - GASTROINTESTINAL TOXICITY [None]
  - HAEMORRHOIDS [None]
  - HEPATOTOXICITY [None]
  - INTESTINAL DILATATION [None]
  - LEUKOPENIA [None]
  - LOSS OF CONSCIOUSNESS [None]
  - NAUSEA [None]
  - NEUTROPENIA [None]
  - OEDEMA [None]
  - RECTAL HAEMORRHAGE [None]
  - THROMBOCYTOPENIA [None]
  - VOMITING [None]
